FAERS Safety Report 8821515 (Version 3)
Quarter: 2012Q4

REPORT INFORMATION
  Report Type: 
  Country: US (occurrence: US)
  Receive Date: 20121002
  Receipt Date: 20121108
  Transmission Date: 20130627
  Serious: Yes (Other)
  Sender: FDA-Public Use
  Company Number: US-PFIZER INC-2012242341

PATIENT
  Age: 63 Year
  Sex: Female
  Weight: 147.39 kg

DRUGS (7)
  1. NEURONTIN [Suspect]
     Indication: NERVE DAMAGE
     Dosage: 300 mg, 3x/day
     Route: 048
     Dates: start: 2011, end: 2012
  2. NEURONTIN [Suspect]
     Indication: NERVE COMPRESSION
     Dosage: 300 mg, 1x/day
     Route: 048
     Dates: start: 201209
  3. NEURONTIN [Suspect]
     Indication: BURNING SENSATION
  4. MECLIZINE [Concomitant]
     Indication: VERTIGO
     Dosage: 25 mg, 3x/day
  5. LISINOPRIL [Concomitant]
     Indication: BLOOD PRESSURE HIGH
     Dosage: 5 mg, UNK
  6. ASPIRIN [Concomitant]
     Dosage: UNK
  7. PANTOPRAZOLE [Concomitant]
     Dosage: 40 mg, 2x/day

REACTIONS (11)
  - Drug dependence [Recovering/Resolving]
  - Muscular weakness [Unknown]
  - Loss of control of legs [Unknown]
  - Gait disturbance [Unknown]
  - Fall [Recovering/Resolving]
  - Impaired work ability [Unknown]
  - Dizziness [Recovering/Resolving]
  - Fatigue [Recovering/Resolving]
  - Asthenia [Recovering/Resolving]
  - Insomnia [Recovering/Resolving]
  - Hypersomnia [Unknown]
